FAERS Safety Report 23715225 (Version 1)
Quarter: 2024Q2

REPORT INFORMATION
  Report Type: Spontaneous
  Country: GB (occurrence: GB)
  Receive Date: 20240407
  Receipt Date: 20240407
  Transmission Date: 20240716
  Serious: Yes (Disabling)
  Sender: FDA-Public Use
  Company Number: None

PATIENT
  Age: 60 Year
  Sex: Female
  Weight: 74 kg

DRUGS (14)
  1. RANOLAZINE [Suspect]
     Active Substance: RANOLAZINE
     Dosage: 750 MG, QD
     Route: 065
     Dates: start: 20240308
  2. ACIDEX ADVANCE [Concomitant]
     Dosage: TAKEN ONE OR TWO 5ML SPOONFULS FOUR TIMES A DAY
     Route: 065
     Dates: start: 20231211
  3. Strivit-d3 [Concomitant]
     Dosage: ONE DOSAGE FORM DAILY
     Route: 065
     Dates: start: 20231013
  4. SYMBICORT [Concomitant]
     Active Substance: BUDESONIDE\FORMOTEROL FUMARATE DIHYDRATE
     Dosage: 1-2 PUFFS TWICE A DAY AS NECESSARY
     Route: 055
     Dates: start: 20231122
  5. AMITRIPTYLINE HYDROCHLORIDE [Concomitant]
     Active Substance: AMITRIPTYLINE HYDROCHLORIDE
     Dosage: ONE DOSAGE FORM AT NIGHT.
     Route: 065
     Dates: start: 20231211
  6. ASPIRIN [Concomitant]
     Active Substance: ASPIRIN
     Dosage: ONE DOSAGE FORM DAILY
     Route: 065
     Dates: start: 20231211
  7. ATORVASTATIN [Concomitant]
     Active Substance: ATORVASTATIN
     Dosage: ONE DOSAGE FORM DAILY.
     Route: 065
     Dates: start: 20231211
  8. BISOPROLOL [Concomitant]
     Active Substance: BISOPROLOL\BISOPROLOL FUMARATE
     Dosage: ONE DOSAGE FORM TWICE A DAY
     Route: 065
     Dates: start: 20231211
  9. CANDESARTAN [Concomitant]
     Active Substance: CANDESARTAN
     Dosage: 0.5 DOSAGE FORM AT NIGHT.
     Route: 065
     Dates: start: 20231211
  10. CETIRIZINE [Concomitant]
     Active Substance: CETIRIZINE HYDROCHLORIDE
     Dosage: ONE DOSAGE FORM DAILY.
     Route: 065
     Dates: start: 20231211
  11. DICLOFENAC DIETHYLAMINE [Concomitant]
     Active Substance: DICLOFENAC DIETHYLAMINE
     Dosage: ONE DOSAGE FORM APPLIED TWO TIMES A DAY.
     Route: 065
     Dates: start: 20231211
  12. FOLIC ACID [Concomitant]
     Active Substance: FOLIC ACID
     Dosage: ONE DOSAGE FORM DAILY.
     Route: 065
     Dates: start: 20230509
  13. NITROGLYCERIN [Concomitant]
     Active Substance: NITROGLYCERIN
     Dosage: 2 DOSAGE FORMS, AS NECESSARY.
     Route: 055
     Dates: start: 20220328
  14. LANSOPRAZOLE [Concomitant]
     Active Substance: LANSOPRAZOLE
     Dosage: ONE DOSAGE FORM TWO TIMES A DAY.
     Route: 065
     Dates: start: 20231211

REACTIONS (2)
  - Nausea [Recovered/Resolved]
  - Abdominal pain [Unknown]
